FAERS Safety Report 20825960 (Version 1)
Quarter: 2022Q2

REPORT INFORMATION
  Report Type: Spontaneous
  Country: NL (occurrence: NL)
  Receive Date: 20220513
  Receipt Date: 20220513
  Transmission Date: 20220720
  Serious: Yes (Other)
  Sender: FDA-Public Use
  Company Number: NL-SUN PHARMACEUTICAL INDUSTRIES LTD-2022R1-336321

PATIENT
  Sex: Female

DRUGS (2)
  1. ALBUTEROL [Suspect]
     Active Substance: ALBUTEROL
     Indication: Shrinking lung syndrome
     Dosage: UNK (RAISED TO 60 MG/D)
     Route: 065
  2. THEOPHYLLINE [Suspect]
     Active Substance: THEOPHYLLINE
     Indication: Shrinking lung syndrome
     Dosage: UNK
     Route: 065

REACTIONS (2)
  - Supraventricular tachycardia [Recovering/Resolving]
  - Atrial flutter [Recovering/Resolving]
